FAERS Safety Report 22528795 (Version 1)
Quarter: 2023Q2

REPORT INFORMATION
  Report Type: Spontaneous
  Country: MX (occurrence: MX)
  Receive Date: 20230607
  Receipt Date: 20230607
  Transmission Date: 20230721
  Serious: Yes (Hospitalization, Other)
  Sender: FDA-Public Use
  Company Number: MX-ROCHE-3052151

PATIENT
  Age: 59 Year
  Sex: Female
  Weight: 76 kg

DRUGS (9)
  1. CLONAZEPAM [Suspect]
     Active Substance: CLONAZEPAM
     Indication: Product used for unknown indication
  2. DEFLAZACORT [Suspect]
     Active Substance: DEFLAZACORT
  3. TOCILIZUMAB [Suspect]
     Active Substance: TOCILIZUMAB
     Indication: Rheumatoid arthritis
     Dosage: PREFILLED SYRINGES 162MG/0.9ML,FREQUENCY: SINGLE 15 DAYS
     Route: 058
     Dates: start: 20180320
  4. CORTISONE [Suspect]
     Active Substance: CORTISONE
     Indication: Product used for unknown indication
  5. VITAMIN E [Concomitant]
     Active Substance: .ALPHA.-TOCOPHEROL
  6. VITAMIN D3 [Concomitant]
     Active Substance: CHOLECALCIFEROL
  7. MAGNESIUM [Concomitant]
     Active Substance: MAGNESIUM
  8. LEXAPRO [Concomitant]
     Active Substance: ESCITALOPRAM OXALATE
  9. KARET [Concomitant]
     Indication: Thyroid disorder

REACTIONS (13)
  - Spinal operation [Recovered/Resolved]
  - Fall [Unknown]
  - Arterial disorder [Not Recovered/Not Resolved]
  - Depression [Not Recovered/Not Resolved]
  - Anxiety [Not Recovered/Not Resolved]
  - Hypersensitivity [Not Recovered/Not Resolved]
  - Somnolence [Not Recovered/Not Resolved]
  - Gastroenteritis [Unknown]
  - Urinary tract infection [Unknown]
  - Dry eye [Unknown]
  - Blood creatinine increased [Unknown]
  - Weight increased [Unknown]
  - Blood pressure increased [Unknown]

NARRATIVE: CASE EVENT DATE: 20210814
